FAERS Safety Report 8849387 (Version 2)
Quarter: 2013Q2

REPORT INFORMATION
  Report Type: Spontaneous
  Country: US (occurrence: None)
  Receive Date: 20120426
  Receipt Date: 20120703
  Transmission Date: 20140414
  Serious: No
  Sender: FDA-Public Use
  Company Number: PHEH2012US002203

PATIENT
  Age: 42 Year
  Sex: Female
  Weight: 108 kg

DRUGS (5)
  1. GILENYA [Suspect]
     Route: 048
     Dates: start: 20110421
  2. EFFEXOR (VENLAFAXINE HYDROCHLORIDE) TABLET [Concomitant]
  3. VICODIN ES (HYDROCODONE BITARTRATE, PARACETAMOL) TABLET [Concomitant]
  4. ASACOL (MESALAZINE) TABLET [Concomitant]
  5. METAMUCIL (ISPAGHULA, PLANTAGO OVATA) CAPSULE [Concomitant]

REACTIONS (1)
  - Fatigue [None]
